FAERS Safety Report 6141188-4 (Version None)
Quarter: 2009Q1

REPORT INFORMATION
  Report Type: 
  Country: None (occurrence: None)
  Receive Date: 20090330
  Receipt Date: 20090330
  Transmission Date: 20090719
  Serious: Yes (Life-Threatening)
  Sender: FDA-Public Use
  Company Number: None

PATIENT
  Age: 61 Year
  Sex: Male
  Weight: 111.1313 kg

DRUGS (2)
  1. PRIMATENE MIST [Suspect]
     Indication: EAGLE BARRETT SYNDROME
     Dosage: ORAL
     Route: 048
  2. ALBUTEROL -THE OLD ONE- [Suspect]
     Dosage: ORAL
     Route: 048

REACTIONS (3)
  - ASTHMA [None]
  - ECONOMIC PROBLEM [None]
  - TREATMENT NONCOMPLIANCE [None]
